FAERS Safety Report 25261095 (Version 2)
Quarter: 2025Q2

REPORT INFORMATION
  Report Type: Report from Study
  Country: AE (occurrence: AE)
  Receive Date: 20250501
  Receipt Date: 20250509
  Transmission Date: 20250717
  Serious: Yes (Hospitalization, Other)
  Sender: TAIHO ONCOLOGY INC
  Company Number: AE-SERVIER-S25005552

PATIENT
  Age: 34 Year
  Sex: Female

DRUGS (1)
  1. LONSURF [Suspect]
     Active Substance: TIPIRACIL HYDROCHLORIDE\TRIFLURIDINE
     Indication: Colorectal cancer
     Route: 048
     Dates: start: 202501

REACTIONS (9)
  - Dyspnoea [Unknown]
  - Heart rate increased [Unknown]
  - Disturbance in attention [Unknown]
  - Memory impairment [Unknown]
  - Pain [Unknown]
  - Abdominal distension [Unknown]
  - Asthenia [Unknown]
  - Emotional distress [Unknown]
  - Malignant neoplasm progression [Unknown]
